FAERS Safety Report 9350828 (Version 1)
Quarter: 2013Q2

REPORT INFORMATION
  Report Type: Spontaneous
  Country: US (occurrence: US)
  Receive Date: 20130617
  Receipt Date: 20130617
  Transmission Date: 20140414
  Serious: Yes (Hospitalization)
  Sender: FDA-Public Use
  Company Number: US-JNJFOC-20130605502

PATIENT
  Age: 49 Year
  Sex: Female

DRUGS (2)
  1. SUDAFED [Suspect]
     Route: 065
  2. SUDAFED [Suspect]
     Indication: MULTIPLE ALLERGIES
     Route: 065
     Dates: start: 201002

REACTIONS (3)
  - Aneurysm [Unknown]
  - Headache [Unknown]
  - Amnesia [Unknown]
